FAERS Safety Report 11867629 (Version 1)
Quarter: 2015Q4

REPORT INFORMATION
  Report Type: Spontaneous
  Country: US (occurrence: US)
  Receive Date: 20151224
  Receipt Date: 20151224
  Transmission Date: 20160305
  Serious: Yes (Hospitalization, Other)
  Sender: FDA-Public Use
  Company Number: US-SA-2015SA217461

PATIENT
  Age: 65 Year
  Sex: Female

DRUGS (21)
  1. LASIX [Suspect]
     Active Substance: FUROSEMIDE
     Route: 065
  2. IRON [Concomitant]
     Active Substance: IRON
  3. CALCIUM ASCORBATE [Concomitant]
     Active Substance: CALCIUM ASCORBATE
  4. TYLENOL [Concomitant]
     Active Substance: ACETAMINOPHEN
  5. INSULIN [Concomitant]
     Active Substance: INSULIN NOS
  6. BLINDED THERAPY [Concomitant]
     Active Substance: INVESTIGATIONAL PRODUCT
     Dates: start: 20120918
  7. ROCEPHIN [Concomitant]
     Active Substance: CEFTRIAXONE SODIUM
  8. OFLOXACIN. [Concomitant]
     Active Substance: OFLOXACIN
  9. TETRACAINE. [Concomitant]
     Active Substance: TETRACAINE
  10. AMLODIPINE [Concomitant]
     Active Substance: AMLODIPINE BESYLATE
  11. FLURESS [Concomitant]
     Active Substance: BENOXINATE HYDROCHLORIDE\FLUORESCEIN SODIUM
  12. AK-DILATE [Concomitant]
  13. TROPICAMIDE. [Concomitant]
     Active Substance: TROPICAMIDE
  14. BETADINE [Concomitant]
     Active Substance: POVIDONE-IODINE
  15. LOSARTAN. [Concomitant]
     Active Substance: LOSARTAN
  16. TRIESENCE [Concomitant]
     Active Substance: TRIAMCINOLONE ACETONIDE
  17. COREG [Concomitant]
     Active Substance: CARVEDILOL
  18. LEVEMIR [Concomitant]
     Active Substance: INSULIN DETEMIR
  19. LIPITOR [Concomitant]
     Active Substance: ATORVASTATIN CALCIUM
  20. HUMALOG [Concomitant]
     Active Substance: INSULIN LISPRO
  21. FLUORESCEIN SODIUM. [Concomitant]
     Active Substance: FLUORESCEIN SODIUM

REACTIONS (12)
  - Headache [Recovered/Resolved]
  - Ocular hypertension [Unknown]
  - Malignant hypertension [Recovered/Resolved]
  - Haemorrhage [Unknown]
  - Headache [Unknown]
  - Hypercholesterolaemia [Unknown]
  - Blood pressure increased [Recovered/Resolved]
  - Secretion discharge [Unknown]
  - Urinary tract infection [Unknown]
  - Retinal exudates [Unknown]
  - Intraocular pressure increased [Unknown]
  - Hypertension [Unknown]

NARRATIVE: CASE EVENT DATE: 20121010
